FAERS Safety Report 8826892 (Version 3)
Quarter: 2014Q2

REPORT INFORMATION
  Report Type: Report from Study
  Country: US (occurrence: US)
  Receive Date: 20121005
  Receipt Date: 20131018
  Transmission Date: 20141212
  Serious: Yes (Other)
  Sender: FDA-Public Use
  Company Number: US-PFIZER INC-2012244108

PATIENT
  Age: 58 Year
  Sex: Female
  Weight: 76.19 kg

DRUGS (12)
  1. MORPHINE SULFATE [Suspect]
     Dosage: UNK
     Route: 065
  2. NALOXONE\OXYCODONE [Suspect]
     Indication: PAIN
     Dosage: 20/40 MG, 2X/DAY
     Route: 048
     Dates: start: 20111027, end: 20111102
  3. COCAINE [Suspect]
     Indication: PRODUCT USED FOR UNKNOWN INDICATION
     Dosage: UNK
     Route: 065
  4. OXYCODONE HYDROCHLORIDE [Concomitant]
     Dosage: 10 MG, DAILY (2 CAPSULES OF 5 MG DAILY)
     Dates: start: 20110916
  5. TRAMADOL [Concomitant]
     Dosage: UNK
     Dates: start: 201105, end: 20110926
  6. AMLODIPINE [Concomitant]
     Dosage: UNK
     Dates: start: 2009
  7. WELLBUTRIN [Concomitant]
     Dosage: UNK
     Dates: start: 201107
  8. PREMARIN [Concomitant]
     Dosage: UNK
     Dates: start: 201105
  9. CITALOPRAM [Concomitant]
     Dosage: UNK
     Dates: start: 201105
  10. ASA [Concomitant]
     Dosage: UNK
     Dates: start: 201107
  11. VITAMIN D [Concomitant]
     Dosage: UNK
     Dates: start: 201107
  12. FOSAMAX [Concomitant]
     Dosage: UNK
     Dates: start: 201105

REACTIONS (1)
  - Substance abuse [Recovered/Resolved]
